FAERS Safety Report 8781287 (Version 2)
Quarter: 2012Q4

REPORT INFORMATION
  Report Type: 
  Country: BE (occurrence: BE)
  Receive Date: 20120913
  Receipt Date: 20120918
  Transmission Date: 20130627
  Serious: Yes (Death)
  Sender: FDA-Public Use
  Company Number: PHHY2012BE079134

PATIENT
  Sex: Female

DRUGS (1)
  1. SANDOSTATIN LAR [Suspect]
     Indication: INTESTINAL OBSTRUCTION
     Dosage: 20 mg, once in a month
     Route: 030
     Dates: start: 20120712

REACTIONS (3)
  - Neoplasm progression [Fatal]
  - Malignant neoplasm progression [Fatal]
  - Lung cancer metastatic [None]
